FAERS Safety Report 4339410-X (Version None)
Quarter: 2004Q2

REPORT INFORMATION
  Report Type: 
  Country: None (occurrence: None)
  Receive Date: 20040415
  Receipt Date: 20030509
  Transmission Date: 20050107
  Serious: Yes (Death, Life-Threatening)
  Sender: FDA-Public Use
  Company Number: PHRM2003FR01437

PATIENT
  Age: 52 Year
  Sex: Female

DRUGS (1)
  1. ZOMETA [Suspect]
     Dosage: 4 MG/DAY
     Route: 042
     Dates: start: 20030207, end: 20030207

REACTIONS (8)
  - ANURIA [None]
  - BLOOD BICARBONATE DECREASED [None]
  - BLOOD PHOSPHORUS INCREASED [None]
  - COMA [None]
  - HYPOCALCAEMIA [None]
  - HYPOCHLORAEMIA [None]
  - HYPONATRAEMIA [None]
  - RENAL FAILURE ACUTE [None]
